FAERS Safety Report 5925066-9 (Version None)
Quarter: 2008Q4

REPORT INFORMATION
  Report Type: 
  Country: None (occurrence: None)
  Receive Date: 20081021
  Receipt Date: 20081013
  Transmission Date: 20090506
  Serious: Yes (Hospitalization)
  Sender: FDA-Public Use
  Company Number: FR-JNJFOC-20081003366

PATIENT
  Sex: Male

DRUGS (6)
  1. HALDOL [Suspect]
     Indication: PERSONALITY DISORDER
     Route: 048
  2. ZYPREXA [Suspect]
     Indication: PERSONALITY DISORDER
     Route: 048
  3. TERCIAN [Suspect]
     Indication: PERSONALITY DISORDER
     Route: 048
  4. NORSET [Concomitant]
     Indication: PERSONALITY DISORDER
     Route: 065
  5. NEXIUM [Concomitant]
     Indication: GASTRITIS
     Route: 065
  6. SUBUTEX [Concomitant]
     Indication: DRUG DEPENDENCE
     Route: 048

REACTIONS (2)
  - DIABETES MELLITUS [None]
  - DIABETIC HYPEROSMOLAR COMA [None]
